FAERS Safety Report 17919425 (Version 1)
Quarter: 2020Q2

REPORT INFORMATION
  Report Type: Spontaneous
  Country: CO (occurrence: CO)
  Receive Date: 20200619
  Receipt Date: 20200619
  Transmission Date: 20200714
  Serious: Yes (Life-Threatening, Other)
  Sender: FDA-Public Use
  Company Number: NVSC2020CO171017

PATIENT
  Age: 55 Year
  Sex: Male

DRUGS (1)
  1. CYCLOSPORINE. [Suspect]
     Active Substance: CYCLOSPORINE
     Indication: ASCITES
     Dosage: UNK
     Route: 065

REACTIONS (5)
  - Renal failure [Recovering/Resolving]
  - Seizure [Recovering/Resolving]
  - Postoperative wound infection [Recovering/Resolving]
  - Transplant rejection [Unknown]
  - Transaminases increased [Unknown]
